FAERS Safety Report 7362035-9 (Version None)
Quarter: 2011Q1

REPORT INFORMATION
  Report Type: 
  Country: None (occurrence: None)
  Receive Date: 20110318
  Receipt Date: 20110221
  Transmission Date: 20110831
  Serious: No
  Sender: FDA-Public Use
  Company Number: US-B.I. PHARMACEUTICALS,INC./RIDGEFIELD-2011-BP-00191BP

PATIENT
  Sex: Female

DRUGS (9)
  1. LOSARTAN POTASSIUM [Concomitant]
     Dosage: 100 MG
  2. MULTAQ [Concomitant]
     Dosage: 800 MG
  3. CLONIDINE [Concomitant]
     Dosage: 0.2 MG
  4. KLOR-CON [Concomitant]
     Dosage: M 20 DAILY
  5. PRADAXA [Suspect]
     Indication: ANTICOAGULANT THERAPY
  6. SPIRONOLACTONE [Concomitant]
     Dosage: 50 MG
  7. CRESTOR [Concomitant]
     Dosage: 20 MG
  8. PRADAXA [Suspect]
     Indication: ATRIAL FIBRILLATION
     Dosage: 300 MG
     Route: 048
     Dates: start: 20101218
  9. LEVOTHYROXINE SODIUM [Concomitant]
     Dosage: 137 MCG

REACTIONS (1)
  - INSOMNIA [None]
